FAERS Safety Report 16846809 (Version 2)
Quarter: 2019Q4

REPORT INFORMATION
  Report Type: Spontaneous
  Country: US (occurrence: US)
  Receive Date: 20190924
  Receipt Date: 20191004
  Transmission Date: 20200122
  Serious: Yes (Other)
  Sender: FDA-Public Use
  Company Number: US-GLAXOSMITHKLINE-US2019168905

PATIENT
  Age: 89 Year
  Sex: Female

DRUGS (1)
  1. TUMS EX [Suspect]
     Active Substance: CALCIUM CARBONATE
     Indication: GASTROOESOPHAGEAL REFLUX DISEASE
     Dosage: UNK
     Dates: start: 20190915, end: 20190915

REACTIONS (6)
  - Anxiety [Not Recovered/Not Resolved]
  - Oropharyngeal pain [Not Recovered/Not Resolved]
  - Wrong technique in product usage process [Unknown]
  - Product complaint [Unknown]
  - Product use in unapproved indication [Unknown]
  - Choking [Not Recovered/Not Resolved]

NARRATIVE: CASE EVENT DATE: 20190915
